FAERS Safety Report 25981857 (Version 1)
Quarter: 2025Q4

REPORT INFORMATION
  Report Type: Spontaneous
  Country: JP (occurrence: JP)
  Receive Date: 20251031
  Receipt Date: 20251031
  Transmission Date: 20260118
  Serious: Yes (Hospitalization, Other)
  Sender: Vantive US Healthcare
  Company Number: JP-VANTIVE-2025VAN004685

PATIENT
  Age: 82 Year
  Sex: Female

DRUGS (1)
  1. REGUNEAL LCA [Suspect]
     Active Substance: CALCIUM CHLORIDE\DEXTROSE MONOHYDRATE\HYDROCHLORIC ACID\MAGNESIUM CHLORIDE\SODIUM BICARBONATE\SODIUM
     Dosage: 1500 TIDAL 85% 5 CYCLES
     Route: 033
     Dates: start: 20241130

REACTIONS (7)
  - Peritonitis [Not Recovered/Not Resolved]
  - Intestinal ischaemia [Unknown]
  - Gastrointestinal oedema [Unknown]
  - Vomiting [Unknown]
  - Feeding disorder [Unknown]
  - Blood pressure systolic decreased [Not Recovered/Not Resolved]
  - Inflammation [Unknown]

NARRATIVE: CASE EVENT DATE: 20251009
